FAERS Safety Report 5199976-7 (Version None)
Quarter: 2007Q1

REPORT INFORMATION
  Report Type: 
  Country: None (occurrence: None)
  Receive Date: 20070103
  Receipt Date: 20061220
  Transmission Date: 20070707
  Serious: Yes (Hospitalization)
  Sender: FDA-Public Use
  Company Number: 2006SP002124

PATIENT
  Age: 61 Year
  Sex: Male
  Weight: 81.6475 kg

DRUGS (4)
  1. PEG-INTRON [Suspect]
     Indication: HEPATITIS C
     Dates: start: 20060313, end: 20060810
  2. REBETOL [Suspect]
     Indication: HEPATITIS C
     Dosage: PO
     Route: 048
     Dates: start: 20060313, end: 20060810
  3. LITHIUM CARBONATE [Concomitant]
  4. MELLARIL [Concomitant]

REACTIONS (24)
  - ABNORMAL BEHAVIOUR [None]
  - ACIDOSIS [None]
  - ANAEMIA [None]
  - ASTHENIA [None]
  - ATROPHY [None]
  - BLOOD BILIRUBIN INCREASED [None]
  - BLOOD THYROID STIMULATING HORMONE INCREASED [None]
  - COMA [None]
  - CSF PROTEIN DECREASED [None]
  - DEHYDRATION [None]
  - DELIRIUM [None]
  - ENCEPHALITIS [None]
  - EUTHYROID SICK SYNDROME [None]
  - FATIGUE [None]
  - GAIT DISTURBANCE [None]
  - LOSS OF CONSCIOUSNESS [None]
  - MENTAL STATUS CHANGES [None]
  - METABOLIC ENCEPHALOPATHY [None]
  - MYOCLONUS [None]
  - MYOGLOBIN BLOOD INCREASED [None]
  - SPEECH DISORDER [None]
  - THYROXINE INCREASED [None]
  - VASCULITIS [None]
  - WEIGHT DECREASED [None]
